FAERS Safety Report 14032257 (Version 6)
Quarter: 2022Q1

REPORT INFORMATION
  Report Type: Spontaneous
  Country: IN (occurrence: IN)
  Receive Date: 20171002
  Receipt Date: 20220224
  Transmission Date: 20220423
  Serious: Yes (Other)
  Sender: FDA-Public Use
  Company Number: IN-PFIZER INC-2017420479

PATIENT
  Age: 45 Year
  Sex: Female

DRUGS (5)
  1. PALBOCICLIB [Suspect]
     Active Substance: PALBOCICLIB
     Indication: Breast cancer metastatic
     Dosage: 125 MG, CYCLIC 21 DAYS + 7 DAYS GAP
     Dates: start: 201708
  2. PALBOCICLIB [Suspect]
     Active Substance: PALBOCICLIB
     Dosage: 125 MG, CYCLIC 21 TABS FOR 21 DAYS AND GAP FOR 7 DAYS
     Route: 048
     Dates: start: 20170916
  3. FEMARA [Concomitant]
     Active Substance: LETROZOLE
     Dosage: 2.5 MG, DAILY
  4. XGEVA [Concomitant]
     Active Substance: DENOSUMAB
     Dosage: 120 MG, CYCLIC (EVERY THREE MONTHS)
     Route: 058
  5. CALCIMAX [CALCIUM CARBONATE;COLECALCIFEROL] [Concomitant]
     Dosage: 500 MG, 1X/DAY

REACTIONS (9)
  - Gait inability [Unknown]
  - Neoplasm recurrence [Unknown]
  - Urinary tract disorder [Unknown]
  - Pruritus [Unknown]
  - Furuncle [Unknown]
  - Ageusia [Unknown]
  - Mouth ulceration [Unknown]
  - Rash [Unknown]
  - Feeling hot [Unknown]

NARRATIVE: CASE EVENT DATE: 20170101
